FAERS Safety Report 12306581 (Version 1)
Quarter: 2016Q2

REPORT INFORMATION
  Report Type: Spontaneous
  Country: FR (occurrence: FR)
  Receive Date: 20160426
  Receipt Date: 20160426
  Transmission Date: 20160815
  Serious: Yes (Other)
  Sender: FDA-Public Use
  Company Number: FR-SA-2016SA081660

PATIENT
  Age: 93 Year
  Sex: Female

DRUGS (9)
  1. LASILIX [Suspect]
     Active Substance: FUROSEMIDE
     Route: 048
     Dates: start: 20160326, end: 20160326
  2. ISOPTINE [Suspect]
     Active Substance: VERAPAMIL HYDROCHLORIDE
     Dosage: EXTENDED RELEAESE
     Route: 048
     Dates: start: 20160326, end: 20160326
  3. TEGRETOL [Suspect]
     Active Substance: CARBAMAZEPINE
     Dosage: EXTENDED RELAESE
     Route: 048
     Dates: start: 20160326, end: 20160326
  4. NOZINAN [Suspect]
     Active Substance: LEVOMEPROMAZINE
     Route: 048
     Dates: start: 20160326, end: 20160326
  5. EFFEXOR LP [Suspect]
     Active Substance: VENLAFAXINE HYDROCHLORIDE
     Dosage: EXTENDED CAPSULE
     Route: 048
     Dates: start: 20160326, end: 20160326
  6. KALEORID [Suspect]
     Active Substance: POTASSIUM CHLORIDE
     Dosage: EXTENDED RELEASE
     Route: 048
     Dates: start: 20160326, end: 20160326
  7. LYSANXIA [Suspect]
     Active Substance: PRAZEPAM
     Route: 048
     Dates: start: 20160326, end: 20160326
  8. THEOSTAT [Suspect]
     Active Substance: THEOPHYLLINE ANHYDROUS
     Dosage: EXTENDED RELESASE
     Route: 048
     Dates: start: 20160326, end: 20160326
  9. LEVOTHYROX [Concomitant]
     Active Substance: LEVOTHYROXINE
     Indication: THYROID DISORDER
     Route: 048

REACTIONS (4)
  - Wrong patient received medication [Unknown]
  - Medication error [Unknown]
  - Somnolence [Recovered/Resolved]
  - Blood creatinine increased [Recovered/Resolved]

NARRATIVE: CASE EVENT DATE: 20160326
